FAERS Safety Report 6137938-3 (Version None)
Quarter: 2009Q1

REPORT INFORMATION
  Report Type: 
  Country: None (occurrence: None)
  Receive Date: 20090331
  Receipt Date: 20090319
  Transmission Date: 20090719
  Serious: Yes (Death, Hospitalization, Other)
  Sender: FDA-Public Use
  Company Number: US-PFIZER INC-2008030589

PATIENT
  Sex: Male
  Weight: 61 kg

DRUGS (4)
  1. DILANTIN-125 [Suspect]
     Indication: CONVULSION
     Route: 048
     Dates: start: 20000930, end: 20001001
  2. DILANTIN [Suspect]
     Indication: CONVULSION
     Route: 048
     Dates: start: 20001002, end: 20001001
  3. TOPAMAX [Concomitant]
     Indication: CONVULSION
     Route: 048
     Dates: start: 20001009
  4. DEPAKOTE [Concomitant]
     Indication: CONVULSION
     Route: 048
     Dates: start: 20001006

REACTIONS (4)
  - ANXIETY [None]
  - BLINDNESS [None]
  - STEVENS-JOHNSON SYNDROME [None]
  - TOXIC EPIDERMAL NECROLYSIS [None]
